FAERS Safety Report 14116185 (Version 16)
Quarter: 2019Q3

REPORT INFORMATION
  Report Type: Spontaneous
  Country: US (occurrence: US)
  Receive Date: 20171023
  Receipt Date: 20190718
  Transmission Date: 20191004
  Serious: Yes (Hospitalization)
  Sender: FDA-Public Use
  Company Number: US-ACTELION-A-NJ2017-161363

PATIENT
  Sex: Female
  Weight: 63.04 kg

DRUGS (5)
  1. VELETRI [Suspect]
     Active Substance: EPOPROSTENOL
     Dosage: 42 NG/KG, PER MIN
     Route: 042
  2. VELETRI [Suspect]
     Active Substance: EPOPROSTENOL
     Indication: PULMONARY HYPERTENSION
     Dosage: 50 NG/KG, PER MIN
     Route: 042
  3. VELETRI [Suspect]
     Active Substance: EPOPROSTENOL
     Dosage: 46 NG/KG, PER MIN
     Route: 042
  4. OPSUMIT [Suspect]
     Active Substance: MACITENTAN
     Indication: PULMONARY HYPERTENSION
     Dosage: 10 MG, QD
     Route: 048
  5. SILDENAFIL CITRATE. [Concomitant]
     Active Substance: SILDENAFIL CITRATE

REACTIONS (27)
  - Diarrhoea [Unknown]
  - Headache [Not Recovered/Not Resolved]
  - Limb injury [Unknown]
  - Dyspnoea [Unknown]
  - Body temperature increased [Unknown]
  - Upper respiratory tract infection [Unknown]
  - Erythema [Unknown]
  - Pain in jaw [Unknown]
  - Nausea [Unknown]
  - Catheter site haemorrhage [Recovered/Resolved]
  - Lip discolouration [Unknown]
  - Seasonal allergy [Unknown]
  - Rash erythematous [Unknown]
  - Device related infection [Unknown]
  - Transplant evaluation [Unknown]
  - Weight decreased [Unknown]
  - Flushing [Not Recovered/Not Resolved]
  - Catheter site swelling [Unknown]
  - Nasal congestion [Unknown]
  - Cough [Unknown]
  - Device leakage [Unknown]
  - Catheter site erythema [Unknown]
  - Unevaluable event [Unknown]
  - Catheter site pain [Unknown]
  - Device alarm issue [Recovered/Resolved]
  - Sinus congestion [Unknown]
  - Dyspnoea exertional [Not Recovered/Not Resolved]
